FAERS Safety Report 7469996-8 (Version None)
Quarter: 2011Q2

REPORT INFORMATION
  Report Type: 
  Country: None (occurrence: None)
  Receive Date: 20110429
  Receipt Date: 20110421
  Transmission Date: 20111010
  Serious: Yes (Other)
  Sender: FDA-Public Use
  Company Number: DE-2010-2437

PATIENT
  Age: 40 Year
  Sex: Male

DRUGS (7)
  1. PANTOPRAZOL [Concomitant]
  2. NAVELBINE [Suspect]
     Indication: OESOPHAGEAL CARCINOMA
     Dosage: 25 MG/M2 1 X WK IV
     Route: 042
     Dates: start: 20100721, end: 20100908
  3. PALLADONE [Concomitant]
  4. NAVELBINE [Suspect]
     Indication: OESOPHAGEAL CANCER METASTATIC
     Dosage: 25 MG/M2 1X WK IV
     Route: 042
     Dates: start: 20110103, end: 20110309
  5. EZETIMIBE [Concomitant]
  6. ONDANSETRON [Concomitant]
  7. TARGIN [Concomitant]

REACTIONS (8)
  - HEADACHE [None]
  - CHEST PAIN [None]
  - DRUG INTOLERANCE [None]
  - OFF LABEL USE [None]
  - HYPERAESTHESIA [None]
  - PHOTOSENSITIVITY REACTION [None]
  - NAUSEA [None]
  - NECK PAIN [None]
